FAERS Safety Report 19932946 (Version 2)
Quarter: 2021Q4

REPORT INFORMATION
  Report Type: Spontaneous
  Country: GB (occurrence: GB)
  Receive Date: 20211008
  Receipt Date: 20211012
  Transmission Date: 20220304
  Serious: Yes (Death, Congenital Anomaly, Other)
  Sender: FDA-Public Use
  Company Number: GB-ABBVIE-21K-167-4107381-00

PATIENT

DRUGS (1)
  1. VALPROATE SODIUM [Suspect]
     Active Substance: VALPROATE SODIUM
     Indication: Maternal exposure timing unspecified
     Route: 064

REACTIONS (12)
  - Sepsis [Fatal]
  - Respiratory distress [Fatal]
  - Metabolic acidosis [Fatal]
  - Brain oedema [Fatal]
  - Hypotension [Fatal]
  - Multiple organ dysfunction syndrome [Fatal]
  - Camptodactyly congenital [Unknown]
  - Hypotonia [Unknown]
  - Kyphoscoliosis [Unknown]
  - Muscle contracture [Unknown]
  - Foetal exposure during pregnancy [Unknown]
  - Hirsutism [Unknown]
